FAERS Safety Report 6422423-1 (Version None)
Quarter: 2009Q4

REPORT INFORMATION
  Report Type: 
  Country: None (occurrence: None)
  Receive Date: 20091030
  Receipt Date: 20091023
  Transmission Date: 20100525
  Serious: Yes (Life-Threatening, Hospitalization)
  Sender: FDA-Public Use
  Company Number: GB-RB-023180-09

PATIENT
  Age: 34 Year
  Sex: Male

DRUGS (1)
  1. SUBOXONE [Suspect]
     Route: 065

REACTIONS (1)
  - SUICIDE ATTEMPT [None]
